FAERS Safety Report 25172857 (Version 2)
Quarter: 2025Q2

REPORT INFORMATION
  Report Type: Report from Study
  Country: CA (occurrence: CA)
  Receive Date: 20250408
  Receipt Date: 20250528
  Transmission Date: 20250717
  Serious: Yes (Other)
  Sender: TAKEDA
  Company Number: CA-TAKEDA-2025TUS033179

PATIENT
  Sex: Male

DRUGS (13)
  1. VEDOLIZUMAB [Suspect]
     Active Substance: VEDOLIZUMAB
     Indication: Colitis ulcerative
  2. PREDNISONE [Concomitant]
     Active Substance: PREDNISONE
     Dosage: 5 MILLIGRAM, QD
     Dates: start: 20231114
  3. PANTOPRAZOLE SODIUM [Concomitant]
     Active Substance: PANTOPRAZOLE SODIUM
  4. RAMIPRIL [Concomitant]
     Active Substance: RAMIPRIL
  5. JANUVIA [Concomitant]
     Active Substance: SITAGLIPTIN PHOSPHATE
  6. POTASSIUM CITRATE [Concomitant]
     Active Substance: POTASSIUM CITRATE
  7. ASPIRIN [Concomitant]
     Active Substance: ASPIRIN
  8. HYDROCORTISONE [Concomitant]
     Active Substance: HYDROCORTISONE
  9. MESALAMINE [Concomitant]
     Active Substance: MESALAMINE
  10. ATORVASTATIN [Concomitant]
     Active Substance: ATORVASTATIN
  11. TAMSULOSIN [Concomitant]
     Active Substance: TAMSULOSIN
  12. BISOPROLOL [Concomitant]
     Active Substance: BISOPROLOL
  13. FINASTERIDE [Concomitant]
     Active Substance: FINASTERIDE

REACTIONS (2)
  - Colitis ulcerative [Not Recovered/Not Resolved]
  - Arthralgia [Not Recovered/Not Resolved]
